FAERS Safety Report 7760385-5 (Version None)
Quarter: 2011Q3

REPORT INFORMATION
  Report Type: 
  Country: None (occurrence: None)
  Receive Date: 20110919
  Receipt Date: 20110912
  Transmission Date: 20111222
  Serious: Yes (Hospitalization, Other)
  Sender: FDA-Public Use
  Company Number: PHHY2011BR82322

PATIENT
  Age: 82 Year
  Sex: Male

DRUGS (4)
  1. INSULIN [Concomitant]
     Indication: DIABETES MELLITUS
     Dosage: UNK UKN, UNK
     Route: 048
     Dates: start: 20090101
  2. ASSERT [Concomitant]
     Dosage: UNK UKN, UNK
     Route: 048
     Dates: start: 20090101
  3. DIOVAN [Concomitant]
     Indication: HYPERTENSION
     Dosage: 1 DF, UNK
     Route: 048
     Dates: start: 20080101
  4. EXELON [Suspect]
     Indication: LOSS OF CONSCIOUSNESS
     Dosage: 4.5 MG, ONE CAPSULE DAILY
     Route: 048

REACTIONS (2)
  - MONOPLEGIA [None]
  - CEREBROVASCULAR ACCIDENT [None]
